FAERS Safety Report 5207560-1 (Version None)
Quarter: 2007Q1

REPORT INFORMATION
  Report Type: 
  Country: None (occurrence: None)
  Receive Date: 20070112
  Receipt Date: 20070104
  Transmission Date: 20070707
  Serious: Yes (Disabling)
  Sender: FDA-Public Use
  Company Number: GB-AMGEN-UK205720

PATIENT
  Age: 79 Year
  Sex: Male
  Weight: 109 kg

DRUGS (14)
  1. DARBEPOETIN ALFA [Suspect]
     Indication: DRUG USE FOR UNKNOWN INDICATION
     Route: 058
     Dates: start: 20060817
  2. ALFACALCIDOL [Concomitant]
     Route: 065
     Dates: start: 20051123
  3. AMLODIPINE [Concomitant]
     Route: 065
     Dates: start: 20050704
  4. ASPIRIN [Concomitant]
     Route: 065
     Dates: start: 20050626
  5. ATORVASTATIN CALCIUM [Concomitant]
     Dates: start: 20040623
  6. CLOTRIMAZOLE [Concomitant]
  7. SALICYLATES [Concomitant]
     Route: 061
     Dates: start: 20040519
  8. FERROUS SULFATE TAB [Concomitant]
     Route: 065
     Dates: start: 20040519
  9. FUROSEMIDE [Concomitant]
     Route: 065
     Dates: start: 20040519
  10. GLICLAZIDE [Concomitant]
     Route: 065
  11. IBUPROFEN [Concomitant]
     Dates: start: 20060707
  12. INSULIN ASPART [Concomitant]
     Route: 065
     Dates: start: 20060727
  13. NOVOMIX [Concomitant]
     Route: 065
     Dates: start: 20051123
  14. ACETAMINOPHEN [Concomitant]
     Route: 065

REACTIONS (1)
  - HYPOGLYCAEMIA [None]
